FAERS Safety Report 9185874 (Version 2)
Quarter: 2013Q1

REPORT INFORMATION
  Report Type: Spontaneous
  Country: US (occurrence: US)
  Receive Date: 20130325
  Receipt Date: 20130328
  Transmission Date: 20140127
  Serious: Yes (Hospitalization)
  Sender: FDA-Public Use
  Company Number: US-BAXTER-2013BAX010430

PATIENT
  Sex: Male

DRUGS (2)
  1. DIANEAL LOW CALCIUM [Suspect]
     Indication: PERITONEAL DIALYSIS
     Route: 033
     Dates: start: 20130304
  2. DIANEAL LOW CALCIUM [Suspect]
     Route: 033
     Dates: start: 20130315

REACTIONS (3)
  - Hypocalcaemia [Unknown]
  - Dyspnoea [Recovered/Resolved]
  - Rash [Recovered/Resolved]
